FAERS Safety Report 5232710-0 (Version None)
Quarter: 2007Q1

REPORT INFORMATION
  Report Type: 
  Country: None (occurrence: None)
  Receive Date: 20070206
  Receipt Date: 20070206
  Transmission Date: 20070707
  Serious: Yes (Death)
  Sender: FDA-Public Use
  Company Number: None

PATIENT
  Age: 14 Year
  Sex: Female
  Weight: 81.6475 kg

DRUGS (2)
  1. KEPPRA [Suspect]
     Indication: CONVULSION
     Dosage: 500MG BID PO
     Route: 048
     Dates: start: 20061128, end: 20070110
  2. TRILEPTAL [Suspect]
     Indication: CONVULSION
     Dosage: 600MG TID PO
     Route: 048
     Dates: start: 20051115, end: 20070110

REACTIONS (1)
  - COMPLETED SUICIDE [None]
